FAERS Safety Report 6808414-7 (Version None)
Quarter: 2010Q2

REPORT INFORMATION
  Report Type: 
  Country: None (occurrence: None)
  Receive Date: 20100629
  Receipt Date: 20090701
  Transmission Date: 20101027
  Serious: No
  Sender: FDA-Public Use
  Company Number: US-PFIZER INC-2009211933

PATIENT
  Age: 74 Year
  Sex: Male

DRUGS (4)
  1. VIAGRA [Suspect]
  2. SIMVASTATIN [Suspect]
     Indication: BLOOD CHOLESTEROL ABNORMAL
     Dosage: 20MG/DAY
     Route: 048
  3. LISINOPRIL [Concomitant]
  4. BETAXOLOL [Concomitant]

REACTIONS (3)
  - CYANOPSIA [None]
  - DRUG INEFFECTIVE [None]
  - LIBIDO DECREASED [None]
